FAERS Safety Report 15925099 (Version 1)
Quarter: 2019Q1

REPORT INFORMATION
  Report Type: Spontaneous
  Country: US (occurrence: US)
  Receive Date: 20190111
  Receipt Date: 20190111
  Transmission Date: 20190417
  Serious: Yes (Death)
  Sender: FDA-Public Use
  Company Number: None

PATIENT
  Sex: Female
  Weight: 56.25 kg

DRUGS (1)
  1. OXYCODONE HCL 15MG TAB [Suspect]
     Active Substance: OXYCODONE HYDROCHLORIDE
     Indication: HEADACHE
     Dates: start: 20161213

REACTIONS (4)
  - Pupillary reflex impaired [None]
  - Respiratory arrest [None]
  - Pulse absent [None]
  - Unresponsive to stimuli [None]
